FAERS Safety Report 8482300 (Version 4)
Quarter: 2015Q1

REPORT INFORMATION
  Report Type: Report from Study
  Country: CA (occurrence: CA)
  Receive Date: 20120329
  Receipt Date: 20150227
  Transmission Date: 20150721
  Serious: Yes (Life-Threatening)
  Sender: FDA-Public Use
  Company Number: PHHY2012CA026567

PATIENT
  Sex: Female

DRUGS (2)
  1. GLEEVEC [Suspect]
     Active Substance: IMATINIB MESYLATE
     Indication: CHRONIC MYELOID LEUKAEMIA
     Dosage: 400 MG, QD
     Route: 048
  2. GLEEVEC [Suspect]
     Active Substance: IMATINIB MESYLATE
     Dosage: 300 MG, QD
     Route: 048
     Dates: end: 2009

REACTIONS (7)
  - Therapeutic response decreased [Unknown]
  - Diverticulitis [Unknown]
  - Diarrhoea [Recovering/Resolving]
  - Malaise [Unknown]
  - Abdominal discomfort [Unknown]
  - Drug intolerance [Unknown]
  - Ataxia [Recovering/Resolving]

NARRATIVE: CASE EVENT DATE: 2006
